FAERS Safety Report 6490704-1 (Version None)
Quarter: 2009Q4

REPORT INFORMATION
  Report Type: 
  Country: None (occurrence: None)
  Receive Date: 20091211
  Receipt Date: 20091203
  Transmission Date: 20100525
  Serious: Yes (Other)
  Sender: FDA-Public Use
  Company Number: B0587263A

PATIENT
  Age: 21 Year
  Sex: Female

DRUGS (4)
  1. RELENZA [Suspect]
     Indication: ILL-DEFINED DISORDER
     Route: 048
     Dates: start: 20090719, end: 20090722
  2. ALBUTEROL [Concomitant]
  3. PREDNISOLONE [Concomitant]
     Dosage: 40MG TWICE PER DAY
  4. CLENIL MODULITE [Concomitant]

REACTIONS (1)
  - ASTHMA [None]
